FAERS Safety Report 21309977 (Version 1)
Quarter: 2022Q3

REPORT INFORMATION
  Report Type: Report from Study
  Country: BR (occurrence: BR)
  Receive Date: 20220909
  Receipt Date: 20220909
  Transmission Date: 20221027
  Serious: Yes (Other)
  Sender: FDA-Public Use
  Company Number: BR-JNJFOC-20220743353

PATIENT
  Age: 70 Year
  Sex: Female
  Weight: 70 kg

DRUGS (2)
  1. SIMPONI [Suspect]
     Active Substance: GOLIMUMAB
     Indication: Rheumatoid arthritis
     Route: 058
     Dates: start: 20200422
  2. SIMPONI [Suspect]
     Active Substance: GOLIMUMAB

REACTIONS (8)
  - Carotid arteriosclerosis [Unknown]
  - Finger deformity [Unknown]
  - Hypertension [Unknown]
  - Blood glucose increased [Unknown]
  - Cardiac disorder [Unknown]
  - Arthralgia [Unknown]
  - Foot deformity [Unknown]
  - COVID-19 [Unknown]
